FAERS Safety Report 9769756 (Version 1)
Quarter: 2013Q4

REPORT INFORMATION
  Report Type: Spontaneous
  Country: US (occurrence: US)
  Receive Date: 20131218
  Receipt Date: 20131218
  Transmission Date: 20140711
  Serious: No
  Sender: FDA-Public Use
  Company Number: US-VERTEX PHARMACEUTICALS INC-AE-2011-000569

PATIENT
  Sex: 0

DRUGS (5)
  1. INCIVEK [Suspect]
     Indication: HEPATITIS C
     Dates: start: 20110722
  2. PEGASYS [Concomitant]
     Indication: HEPATITIS C
     Route: 058
     Dates: start: 20110722
  3. RIBAVIRIN [Concomitant]
     Indication: HEPATITIS C
     Dates: start: 20110722
  4. ALEVE [Concomitant]
     Indication: HEADACHE
     Route: 048
  5. MULTIVITAMIN [Concomitant]
     Indication: NUTRITIONAL SUPPLEMENTATION
     Route: 048

REACTIONS (7)
  - Influenza like illness [Recovered/Resolved]
  - Arthralgia [Recovered/Resolved]
  - Chills [Recovered/Resolved]
  - Feeling hot [Recovered/Resolved]
  - Headache [Unknown]
  - Fatigue [Recovered/Resolved]
  - Nausea [Recovered/Resolved]
